FAERS Safety Report 6997734-1 (Version None)
Quarter: 2010Q3

REPORT INFORMATION
  Report Type: 
  Country: None (occurrence: None)
  Receive Date: 20100919
  Receipt Date: 20100909
  Transmission Date: 20110219
  Serious: Yes (Other)
  Sender: FDA-Public Use
  Company Number: PHHY2010DE15964

PATIENT
  Sex: Female

DRUGS (7)
  1. ACLASTA [Suspect]
     Indication: OSTEOPOROSIS
     Dosage: UNK
     Dates: start: 20100119
  2. SIMVASTATIN [Concomitant]
  3. PLAVIX [Concomitant]
  4. ENALAPRIL [Concomitant]
  5. BISOPROLOL [Concomitant]
  6. HCT [Concomitant]
  7. RAMIPRIL [Concomitant]

REACTIONS (1)
  - ERYTHEMA MULTIFORME [None]
